FAERS Safety Report 5240741-X (Version None)
Quarter: 2007Q1

REPORT INFORMATION
  Report Type: 
  Country: None (occurrence: None)
  Receive Date: 20061208
  Receipt Date: 20051018
  Transmission Date: 20070707
  Serious: Yes (Other)
  Sender: FDA-Public Use
  Company Number: 2005UW15688

PATIENT
  Sex: Male

DRUGS (1)
  1. CRESTOR [Suspect]
     Dates: start: 20050901, end: 20051016

REACTIONS (5)
  - DYSPNOEA [None]
  - EAR PRURITUS [None]
  - EYE PRURITUS [None]
  - PRURITUS GENERALISED [None]
  - THROAT IRRITATION [None]
